FAERS Safety Report 26151808 (Version 1)
Quarter: 2025Q4

REPORT INFORMATION
  Report Type: Spontaneous
  Country: US (occurrence: US)
  Receive Date: 20251214
  Receipt Date: 20251214
  Transmission Date: 20260118
  Serious: No
  Sender: NOBELPHARMA
  Company Number: US-Nobelpharma America, LLC-NPA-2025-00990

PATIENT
  Age: 28 Year
  Sex: Male
  Weight: 73.48 kg

DRUGS (4)
  1. HYFTOR [Suspect]
     Active Substance: SIROLIMUS
     Indication: Neurofibroma
     Route: 061
     Dates: start: 20240328
  2. HYFTOR [Suspect]
     Active Substance: SIROLIMUS
     Indication: Neurofibromatosis
     Route: 061
     Dates: start: 20240328
  3. EPIDIOLEX [Concomitant]
     Active Substance: CANNABIDIOL
     Dosage: 100MG/ML
  4. LACOSAMIDE [Concomitant]
     Active Substance: LACOSAMIDE

REACTIONS (4)
  - Dry skin [Unknown]
  - Application site irritation [Unknown]
  - Product dose omission issue [Unknown]
  - Off label use [Not Recovered/Not Resolved]

NARRATIVE: CASE EVENT DATE: 20240401
